FAERS Safety Report 16124353 (Version 1)
Quarter: 2019Q1

REPORT INFORMATION
  Report Type: Spontaneous
  Country: BE (occurrence: BE)
  Receive Date: 20190327
  Receipt Date: 20190327
  Transmission Date: 20190418
  Serious: Yes (Death, Other)
  Sender: FDA-Public Use
  Company Number: BE-GLAXOSMITHKLINE-BE2019052399

PATIENT
  Age: 25 Year
  Sex: Male
  Weight: 100 kg

DRUGS (1)
  1. LAMICTAL [Suspect]
     Active Substance: LAMOTRIGINE
     Indication: PRODUCT USED FOR UNKNOWN INDICATION
     Dosage: UNK
     Route: 048

REACTIONS (2)
  - Sudden unexplained death in epilepsy [Fatal]
  - Weight increased [Unknown]
